FAERS Safety Report 6786126-6 (Version None)
Quarter: 2010Q2

REPORT INFORMATION
  Report Type: 
  Country: None (occurrence: None)
  Receive Date: 20100623
  Receipt Date: 20100615
  Transmission Date: 20101027
  Serious: Yes (Hospitalization)
  Sender: FDA-Public Use
  Company Number: FR-ASTRAZENECA-2010SE28345

PATIENT
  Age: 27337 Day
  Sex: Female

DRUGS (2)
  1. NEXIUM [Suspect]
     Route: 042
     Dates: start: 20100522, end: 20100531
  2. RIFADIN [Suspect]
     Route: 042
     Dates: start: 20100519, end: 20100531

REACTIONS (1)
  - NEUTROPENIA [None]
